FAERS Safety Report 25289233 (Version 1)
Quarter: 2025Q2

REPORT INFORMATION
  Report Type: Spontaneous
  Country: NL (occurrence: NL)
  Receive Date: 20250509
  Receipt Date: 20250509
  Transmission Date: 20250716
  Serious: Yes (Life-Threatening, Disabling)
  Sender: ABBVIE
  Company Number: None

PATIENT
  Age: 27 Year
  Sex: Female
  Weight: 87 kg

DRUGS (2)
  1. CITALOPRAM [Suspect]
     Active Substance: CITALOPRAM
     Indication: Anxiety
     Dosage: OVERDOSE: 60MG (1X PER DAY 3 PIECES)?STRENGTH: 20 MG
     Route: 048
  2. OXAZEPAM [Concomitant]
     Active Substance: OXAZEPAM
     Indication: Product used for unknown indication
     Route: 048

REACTIONS (6)
  - Depressed mood [Unknown]
  - Withdrawal syndrome [Not Recovered/Not Resolved]
  - Suicide attempt [Recovered/Resolved]
  - Emotional distress [Not Recovered/Not Resolved]
  - Prescribed overdose [Unknown]
  - Suicidal ideation [Recovering/Resolving]
